FAERS Safety Report 7632013-0 (Version None)
Quarter: 2011Q3

REPORT INFORMATION
  Report Type: 
  Country: None (occurrence: None)
  Receive Date: 20110725
  Receipt Date: 20100929
  Transmission Date: 20111222
  Serious: No
  Sender: FDA-Public Use
  Company Number: US-BRISTOL-MYERS SQUIBB COMPANY-14021679

PATIENT
  Sex: Male
  Weight: 78 kg

DRUGS (7)
  1. TOPROL-XL [Concomitant]
  2. QUININE SULFATE [Suspect]
     Dosage: QUININE WATER
  3. MULTI-VITAMIN [Concomitant]
  4. CALCIUM + VITAMIN D [Concomitant]
  5. ASCORBIC ACID [Concomitant]
  6. COUMADIN [Suspect]
     Indication: ATRIAL FIBRILLATION
     Dosage: 23 MG/ WEEK WITH VARYING DAILY DOSES FOR 10 YEARS,INCREASED TO 22MG,STARTED:12YRS AGO
     Route: 048
  7. DOXYCYCLINE [Concomitant]

REACTIONS (1)
  - INTERNATIONAL NORMALISED RATIO FLUCTUATION [None]
